FAERS Safety Report 25324751 (Version 1)
Quarter: 2025Q2

REPORT INFORMATION
  Report Type: Spontaneous
  Country: JP (occurrence: JP)
  Receive Date: 20250516
  Receipt Date: 20250516
  Transmission Date: 20250717
  Serious: Yes (Death)
  Sender: BAYER HEALTHCARE PHARMACEUTICALS INC.
  Company Number: JP-BAYER-2025A066272

PATIENT
  Sex: Male

DRUGS (1)
  1. NUBEQA [Suspect]
     Active Substance: DAROLUTAMIDE
     Indication: Hormone-dependent prostate cancer
     Dates: start: 2024, end: 2024

REACTIONS (2)
  - Prostate cancer [Fatal]
  - Metastasis [Fatal]

NARRATIVE: CASE EVENT DATE: 20240101
